FAERS Safety Report 6759850-9 (Version None)
Quarter: 2010Q2

REPORT INFORMATION
  Report Type: 
  Country: None (occurrence: None)
  Receive Date: 20100608
  Receipt Date: 20100527
  Transmission Date: 20101027
  Serious: Yes (Other)
  Sender: FDA-Public Use
  Company Number: PHHY2009ZA55760

PATIENT
  Age: 60 Year
  Sex: Female

DRUGS (6)
  1. LESCOL [Suspect]
     Dosage: 40 MG, UNK
  2. LESCOL [Suspect]
     Dosage: UNK
  3. CONCOR [Concomitant]
  4. ZOLOFEN [Concomitant]
  5. RYCHOL [Concomitant]
  6. PERINDOPRIL [Concomitant]

REACTIONS (13)
  - BLOOD CHOLESTEROL INCREASED [None]
  - CHEST PAIN [None]
  - DYSURIA [None]
  - EYE SWELLING [None]
  - FOOD ALLERGY [None]
  - HYPERSENSITIVITY [None]
  - HYPOAESTHESIA [None]
  - OEDEMA PERIPHERAL [None]
  - PRURITUS [None]
  - RASH [None]
  - SWELLING [None]
  - SWELLING FACE [None]
  - SWOLLEN TONGUE [None]
